FAERS Safety Report 13780839 (Version 1)
Quarter: 2017Q3

REPORT INFORMATION
  Report Type: Spontaneous
  Country: US (occurrence: US)
  Receive Date: 20170721
  Receipt Date: 20170721
  Transmission Date: 20171127
  Serious: Yes (Disabling)
  Sender: FDA-Public Use
  Company Number: None

PATIENT
  Age: 60 Year
  Sex: Female
  Weight: 69.75 kg

DRUGS (5)
  1. BREO ELLIPTA [Suspect]
     Active Substance: FLUTICASONE FUROATE\VILANTEROL TRIFENATATE
     Indication: ASTHMA
     Dosage: ?          OTHER STRENGTH:UGM/UGM;QUANTITY:1 INHALATION(S);?
     Route: 055
     Dates: start: 20170601
  2. FLONASE [Concomitant]
     Active Substance: FLUTICASONE PROPIONATE
  3. BREO ELLIPTA [Suspect]
     Active Substance: FLUTICASONE FUROATE\VILANTEROL TRIFENATATE
     Indication: CHRONIC OBSTRUCTIVE PULMONARY DISEASE
     Dosage: ?          OTHER STRENGTH:UGM/UGM;QUANTITY:1 INHALATION(S);?
     Route: 055
     Dates: start: 20170601
  4. MULTI -VITAMIN [Concomitant]
  5. PREMARIN [Concomitant]
     Active Substance: ESTROGENS, CONJUGATED

REACTIONS (2)
  - Visual impairment [None]
  - Cataract [None]

NARRATIVE: CASE EVENT DATE: 20170715
